FAERS Safety Report 10095176 (Version 1)
Quarter: 2014Q2

REPORT INFORMATION
  Report Type: Spontaneous
  Country: FR (occurrence: None)
  Receive Date: 20140418
  Receipt Date: 20140418
  Transmission Date: 20141212
  Serious: Yes (Other)
  Sender: FDA-Public Use
  Company Number: FK201401352

PATIENT
  Age: 43 Year
  Sex: Female

DRUGS (3)
  1. VALPROATE [Suspect]
     Indication: FRONTAL LOBE EPILEPSY
  2. CARBAMAZEPINE [Suspect]
     Indication: FRONTAL LOBE EPILEPSY
  3. PHENOBARBITAL (PHENOBARBITAL) [Suspect]
     Indication: FRONTAL LOBE EPILEPSY

REACTIONS (6)
  - Radius fracture [None]
  - Complex regional pain syndrome [None]
  - Osteopenia [None]
  - Vitamin D deficiency [None]
  - Post procedural complication [None]
  - Impaired work ability [None]
